FAERS Safety Report 5096517-X (Version None)
Quarter: 2006Q3

REPORT INFORMATION
  Report Type: 
  Country: None (occurrence: None)
  Receive Date: 20060830
  Receipt Date: 20060817
  Transmission Date: 20061208
  Serious: Yes (Hospitalization)
  Sender: FDA-Public Use
  Company Number: BE200608004082

PATIENT
  Age: 93 Year
  Sex: Female

DRUGS (2)
  1. FORTEO [Suspect]
     Indication: OSTEOPOROSIS
     Dates: start: 20060406
  2. FORTEO PEN (250MCG/ML) (FORTEO PEN 250MCG/ML (3ML) PEN [Concomitant]

REACTIONS (1)
  - TACHYCARDIA [None]
